FAERS Safety Report 13780270 (Version 3)
Quarter: 2017Q3

REPORT INFORMATION
  Report Type: Spontaneous
  Country: AU (occurrence: AU)
  Receive Date: 20170724
  Receipt Date: 20170918
  Transmission Date: 20171127
  Serious: Yes (Hospitalization, Other)
  Sender: FDA-Public Use
  Company Number: US-AMGEN-USASP2017108351

PATIENT
  Age: 71 Year
  Sex: Female

DRUGS (5)
  1. OSTELIN (ERGOCALCIFEROL) [Concomitant]
     Active Substance: ERGOCALCIFEROL
     Dosage: UNK
  2. ACLASTA [Concomitant]
     Active Substance: ZOLEDRONIC ACID
     Indication: OSTEOPOROSIS
     Dosage: 5 MG, 12/12
     Dates: start: 2014, end: 2016
  3. PROLIA [Suspect]
     Active Substance: DENOSUMAB
     Indication: OSTEOPOROSIS POSTMENOPAUSAL
     Dosage: 60 MG, Q6MO
     Route: 058
     Dates: start: 20160502, end: 20170531
  4. CALCIUM [Concomitant]
     Active Substance: CALCIUM
     Indication: OSTEOPOROSIS
     Dosage: 1300 MG, OD
     Dates: start: 20160502
  5. VITAMIN D [Concomitant]
     Active Substance: CHOLECALCIFEROL
     Indication: OSTEOPOROSIS
     Dosage: 1000 MG, OD
     Dates: start: 20160502

REACTIONS (7)
  - Dyspnoea [Not Recovered/Not Resolved]
  - Pain in extremity [Unknown]
  - Cough [Not Recovered/Not Resolved]
  - Musculoskeletal pain [Unknown]
  - Chest discomfort [Not Recovered/Not Resolved]
  - Myalgia [Unknown]
  - Secretion discharge [Unknown]

NARRATIVE: CASE EVENT DATE: 20170606
